FAERS Safety Report 6011843-5 (Version None)
Quarter: 2008Q4

REPORT INFORMATION
  Report Type: 
  Country: None (occurrence: None)
  Receive Date: 20081218
  Receipt Date: 20081208
  Transmission Date: 20090506
  Serious: Yes (Death)
  Sender: FDA-Public Use
  Company Number: US-SANOFI-SYNTHELABO-A03200804928

PATIENT
  Age: 84 Year
  Sex: Female

DRUGS (2)
  1. BETA BLOCKERS [Concomitant]
     Indication: DRUG USE FOR UNKNOWN INDICATION
     Dosage: UNK
     Route: 065
  2. PLAVIX [Suspect]
     Indication: ANGINA UNSTABLE
     Dosage: UNK
     Route: 048
     Dates: start: 20081202

REACTIONS (1)
  - DEATH [None]
